FAERS Safety Report 9475118 (Version 4)
Quarter: 2013Q4

REPORT INFORMATION
  Report Type: Report from Study
  Country: US (occurrence: US)
  Receive Date: 20130824
  Receipt Date: 20131030
  Transmission Date: 20140711
  Serious: Yes (Hospitalization)
  Sender: FDA-Public Use
  Company Number: US-ROCHE-1262093

PATIENT
  Age: 20 Year
  Sex: Female
  Weight: 74.46 kg

DRUGS (24)
  1. RITUXIMAB [Suspect]
     Indication: SCLERODERMA
     Dosage: DOSE: WEEKLY X 4WEEKS. STRENGTH 10 MG/ML
     Route: 042
     Dates: start: 20130321, end: 20130701
  2. RITUXIMAB [Suspect]
     Indication: GRAFT VERSUS HOST DISEASE
  3. SIROLIMUS [Suspect]
     Indication: INTERMITTENT CLAUDICATION
     Route: 065
     Dates: start: 20130822, end: 20130825
  4. SIROLIMUS [Suspect]
     Route: 065
     Dates: start: 20130907, end: 20130917
  5. ACICLOVIR [Suspect]
     Indication: PRODUCT USED FOR UNKNOWN INDICATION
     Route: 065
     Dates: start: 201211
  6. PREDNISOLONE [Concomitant]
     Route: 065
     Dates: start: 201210
  7. TRIAMCINOLONE [Concomitant]
     Route: 065
     Dates: start: 201210
  8. TACROLIMUS [Concomitant]
     Route: 065
     Dates: start: 201307, end: 20130806
  9. PREVACID [Concomitant]
     Route: 065
     Dates: start: 201301
  10. VORICONAZOLE [Concomitant]
     Route: 065
     Dates: start: 201307
  11. OXYCODONE [Concomitant]
     Route: 065
     Dates: start: 201301
  12. GABAPENTIN [Concomitant]
     Route: 065
     Dates: start: 2010
  13. SYNTHROID [Concomitant]
     Route: 065
     Dates: start: 2010
  14. ZOFRAN [Concomitant]
     Route: 065
     Dates: start: 2008
  15. BACTRIM [Concomitant]
     Route: 065
     Dates: start: 2008
  16. ATARAX (UNITED STATES) [Concomitant]
     Route: 065
     Dates: start: 201210
  17. ZOCOR [Concomitant]
     Route: 065
     Dates: start: 201302
  18. LOVENOX [Concomitant]
     Route: 065
     Dates: start: 201302
  19. VFEND [Concomitant]
     Route: 065
     Dates: start: 201302
  20. ATIVAN [Concomitant]
     Route: 065
     Dates: start: 201303
  21. TYLENOL [Concomitant]
     Route: 065
     Dates: start: 201304
  22. OXYCONTIN [Concomitant]
     Route: 065
     Dates: start: 201301
  23. FLUCONAZOLE [Concomitant]
     Route: 065
     Dates: start: 201308
  24. LEVAQUIN [Concomitant]
     Route: 065
     Dates: start: 201308

REACTIONS (7)
  - Renal failure [Recovered/Resolved]
  - Cardiomyopathy [Unknown]
  - Renal failure acute [Unknown]
  - Sepsis [Recovering/Resolving]
  - Cardiac failure congestive [Unknown]
  - Hypotension [Unknown]
  - Pyrexia [Unknown]
